FAERS Safety Report 6993180-5 (Version None)
Quarter: 2010Q3

REPORT INFORMATION
  Report Type: 
  Country: None (occurrence: None)
  Receive Date: 20100917
  Receipt Date: 20090824
  Transmission Date: 20110219
  Serious: Yes (Other)
  Sender: FDA-Public Use
  Company Number: US-ASTRAZENECA-2009UW21054

PATIENT
  Age: 62 Year
  Sex: Male
  Weight: 72.6 kg

DRUGS (4)
  1. SEROQUEL [Suspect]
     Indication: BIPOLAR DISORDER
     Dosage: 25 MG, 100 MG, 200 MG
     Route: 048
     Dates: start: 20050101, end: 20060101
  2. GEODON [Concomitant]
     Dates: start: 20050101
  3. RISPERDAL [Concomitant]
     Dates: start: 20050101
  4. ZYPREXA [Concomitant]
     Dates: start: 20050101

REACTIONS (1)
  - PANCREATITIS [None]
